FAERS Safety Report 20813516 (Version 1)
Quarter: 2022Q2

REPORT INFORMATION
  Report Type: Spontaneous
  Country: US (occurrence: US)
  Receive Date: 20220511
  Receipt Date: 20220511
  Transmission Date: 20220721
  Serious: Yes (Other)
  Sender: FDA-Public Use
  Company Number: US-SANOFI-01092773

PATIENT

DRUGS (5)
  1. DUPIXENT [Suspect]
     Active Substance: DUPILUMAB
     Indication: Ocular pemphigoid
     Dosage: UNK UNK, QOW
  2. DUPIXENT [Suspect]
     Active Substance: DUPILUMAB
     Indication: Mucous membrane pemphigoid
     Dosage: UNK UNK, QW
  3. DUPIXENT [Suspect]
     Active Substance: DUPILUMAB
     Indication: Pemphigoid
  4. DUPIXENT [Suspect]
     Active Substance: DUPILUMAB
     Indication: Diagnostic procedure
  5. DUPIXENT [Suspect]
     Active Substance: DUPILUMAB
     Indication: Herpes gestationis

REACTIONS (3)
  - Pancreatic carcinoma metastatic [Unknown]
  - Product use in unapproved indication [Unknown]
  - Therapeutic response unexpected [Unknown]
